FAERS Safety Report 5710539-4 (Version None)
Quarter: 2008Q2

REPORT INFORMATION
  Report Type: 
  Country: None (occurrence: None)
  Receive Date: 20080415
  Receipt Date: 20080403
  Transmission Date: 20081010
  Serious: Yes (Hospitalization)
  Sender: FDA-Public Use
  Company Number: 2008SP000794

PATIENT
  Age: 56 Year
  Sex: Female
  Weight: 96.1626 kg

DRUGS (10)
  1. XOPENEX (LEVABUTEROL HCI) INHALATION SOLUTION (1.25 MG/3ML) [Suspect]
     Indication: WHEEZING
     Dosage: 1.25 MG/3ML; 1X; INHALATION
     Route: 055
     Dates: start: 20080331, end: 20080331
  2. LISINOPRIL [Concomitant]
  3. HYDROCHLOROTHIAZIDE [Concomitant]
  4. METFORMIN HCL [Concomitant]
  5. TRICOR [Concomitant]
  6. LIPITOR [Concomitant]
  7. SYNTHROID [Concomitant]
  8. AVAPRO [Concomitant]
  9. NASONEX [Concomitant]
  10. ASPIRIN [Concomitant]

REACTIONS (1)
  - STRIDOR [None]
